FAERS Safety Report 15900862 (Version 1)
Quarter: 2019Q1

REPORT INFORMATION
  Report Type: Spontaneous
  Country: US (occurrence: US)
  Receive Date: 20190131
  Receipt Date: 20190131
  Transmission Date: 20190417
  Serious: Yes (Other)
  Sender: FDA-Public Use
  Company Number: None

PATIENT
  Age: 39 Year
  Sex: Female
  Weight: 63.5 kg

DRUGS (1)
  1. MIRENA [Suspect]
     Active Substance: LEVONORGESTREL

REACTIONS (8)
  - Dizziness [None]
  - Migraine [None]
  - Malaise [None]
  - Fatigue [None]
  - Abdominal distension [None]
  - Abdominal pain upper [None]
  - Flatulence [None]
  - Complication of device insertion [None]

NARRATIVE: CASE EVENT DATE: 20181214
